FAERS Safety Report 7530945-5 (Version None)
Quarter: 2011Q2

REPORT INFORMATION
  Report Type: 
  Country: None (occurrence: None)
  Receive Date: 20110608
  Receipt Date: 20110525
  Transmission Date: 20111010
  Serious: Yes (Other)
  Sender: FDA-Public Use
  Company Number: DE-RANBAXY-2011RR-45061

PATIENT
  Sex: Female
  Weight: 64 kg

DRUGS (6)
  1. IBUPROFEN [Suspect]
     Indication: RHEUMATOID ARTHRITIS
     Dosage: 600 MG, UNK
     Route: 048
  2. PREDNISOLONE [Suspect]
     Indication: RHEUMATOID ARTHRITIS
     Dosage: UNK
     Route: 048
  3. VOLTAREN [Suspect]
     Indication: RHEUMATOID ARTHRITIS
     Dosage: 280 MG, UNK
     Route: 048
  4. ACETAMINOPHEN [Concomitant]
     Indication: RHEUMATOID ARTHRITIS
     Dosage: 1500-3000 MG/DAY
     Route: 048
  5. FOLIC ACID [Concomitant]
     Indication: PROPHYLAXIS OF NEURAL TUBE DEFECT
     Dosage: UNK
     Route: 048
     Dates: start: 20081115, end: 20090815
  6. HUMIRA [Concomitant]
     Indication: RHEUMATOID ARTHRITIS
     Dosage: 40 MG, UNK
     Route: 058

REACTIONS (5)
  - DUCTUS ARTERIOSUS STENOSIS FOETAL [None]
  - PREMATURE DELIVERY [None]
  - FOETAL GROWTH RESTRICTION [None]
  - OLIGOHYDRAMNIOS [None]
  - DRUG EXPOSURE DURING PREGNANCY [None]
